FAERS Safety Report 7877168-8 (Version None)
Quarter: 2011Q4

REPORT INFORMATION
  Report Type: 
  Country: None (occurrence: None)
  Receive Date: 20111031
  Receipt Date: 20111021
  Transmission Date: 20120403
  Serious: Yes (Hospitalization)
  Sender: FDA-Public Use
  Company Number: US-BAYER-2011-055307

PATIENT
  Sex: Female
  Weight: 109 kg

DRUGS (10)
  1. CLONAZEPAM [Concomitant]
     Dosage: DAILY DOSE .5 MG
     Route: 048
  2. YASMIN [Suspect]
     Indication: PRODUCT USED FOR UNKNOWN INDICATION
     Dosage: UNK
     Route: 048
     Dates: start: 20060101, end: 20090101
  3. HYDROXYZINE [Concomitant]
     Dosage: DAILY DOSE 80 MG
     Route: 048
  4. BUPROPION HCL [Concomitant]
     Dosage: 100 MG, BID
     Route: 048
  5. SIMVASTATIN [Concomitant]
     Dosage: DAILY DOSE 10 MG
     Route: 048
  6. ESOMEPRAZOLE SODIUM [Concomitant]
     Route: 048
  7. DROSPIRENONE AND ETHINYL ESTRADIOL [Suspect]
     Indication: PRODUCT USED FOR UNKNOWN INDICATION
     Dosage: UNK
     Route: 048
     Dates: start: 20060101, end: 20090101
  8. LISINOPRIL [Concomitant]
     Dosage: DAILY DOSE 10 MG
     Route: 048
  9. ASPIRIN [Concomitant]
     Dosage: DAILY DOSE 81 MG
     Route: 048
  10. PROZAC [Concomitant]
     Dosage: DAILY DOSE 60 MG
     Route: 048

REACTIONS (4)
  - CHOLECYSTECTOMY [None]
  - CHOLECYSTITIS CHRONIC [None]
  - PAIN [None]
  - INJURY [None]
